FAERS Safety Report 14044622 (Version 2)
Quarter: 2017Q4

REPORT INFORMATION
  Report Type: Other
  Country: IT (occurrence: IT)
  Receive Date: 20171004
  Receipt Date: 20171129
  Transmission Date: 20180321
  Serious: Yes (Other)
  Sender: FDA-Public Use
  Company Number: IT-HIKMA PHARMACEUTICALS CO. LTD-2017IT013299

PATIENT

DRUGS (1)
  1. INFLIXIMAB HOSPIRA [Suspect]
     Active Substance: INFLIXIMAB
     Indication: BEHCET^S SYNDROME
     Dosage: 5 MG/KG, CYCLIC
     Route: 051
     Dates: start: 20170510, end: 20170721

REACTIONS (7)
  - Paraesthesia oral [Recovered/Resolved]
  - Product use in unapproved indication [Unknown]
  - Dyspnoea [Recovered/Resolved]
  - Flushing [Recovered/Resolved]
  - Hot flush [Recovered/Resolved]
  - Erythema [Recovered/Resolved]
  - Respiratory fatigue [Recovered/Resolved]

NARRATIVE: CASE EVENT DATE: 20170721
